FAERS Safety Report 8421874-3 (Version None)
Quarter: 2012Q2

REPORT INFORMATION
  Report Type: 
  Country: None (occurrence: None)
  Receive Date: 20120608
  Receipt Date: 20120530
  Transmission Date: 20120825
  Serious: Yes (Hospitalization)
  Sender: FDA-Public Use
  Company Number: US-CELGENEUS-163-21880-12060524

PATIENT
  Sex: Male

DRUGS (1)
  1. REVLIMID [Suspect]
     Indication: LYMPHOMA
     Dosage: 5 MILLIGRAM
     Route: 048
     Dates: start: 20091101

REACTIONS (2)
  - ASTHENIA [None]
  - FAILURE TO THRIVE [None]
